FAERS Safety Report 20066563 (Version 3)
Quarter: 2022Q1

REPORT INFORMATION
  Report Type: Report from Study
  Country: US (occurrence: US)
  Receive Date: 20211115
  Receipt Date: 20220211
  Transmission Date: 20220423
  Serious: No
  Sender: FDA-Public Use
  Company Number: US-BIOVITRUM-2021US10553

PATIENT
  Age: 49 Year
  Sex: Male

DRUGS (2)
  1. KINERET [Suspect]
     Active Substance: ANAKINRA
     Indication: Hidradenitis
     Route: 058
     Dates: start: 20211014
  2. KINERET [Suspect]
     Active Substance: ANAKINRA
     Indication: Psoriasis
     Route: 058
     Dates: start: 202110

REACTIONS (3)
  - Rash macular [Unknown]
  - Injection site pain [Recovered/Resolved]
  - Off label use [Unknown]

NARRATIVE: CASE EVENT DATE: 20211014
